FAERS Safety Report 21813089 (Version 1)
Quarter: 2023Q1

REPORT INFORMATION
  Report Type: Spontaneous
  Country: US (occurrence: None)
  Receive Date: 20230102
  Receipt Date: 20230102
  Transmission Date: 20230417
  Serious: Yes (Life-Threatening, Hospitalization)
  Sender: FDA-Public Use
  Company Number: None

PATIENT
  Age: 62 Year
  Sex: Female
  Weight: 85.5 kg

DRUGS (3)
  1. RYBELSUS [Suspect]
     Active Substance: SEMAGLUTIDE
     Indication: Blood triglycerides increased
     Dosage: OTHER QUANTITY : 10 TABLET(S);?FREQUENCY : DAILY;?
     Route: 048
     Dates: start: 20210910, end: 20220211
  2. VITAMIN D [Concomitant]
     Active Substance: VITAMIN D NOS
  3. VITAMIN B12 [Concomitant]
     Active Substance: CYANOCOBALAMIN

REACTIONS (2)
  - Cholecystitis acute [None]
  - Obstructive pancreatitis [None]

NARRATIVE: CASE EVENT DATE: 20220221
